FAERS Safety Report 17922510 (Version 1)
Quarter: 2020Q2

REPORT INFORMATION
  Report Type: Spontaneous
  Country: US (occurrence: US)
  Receive Date: 20200620
  Receipt Date: 20200620
  Transmission Date: 20200714
  Serious: No
  Sender: FDA-Public Use
  Company Number: None

PATIENT
  Age: 33 Year
  Sex: Female
  Weight: 56.25 kg

DRUGS (2)
  1. TRI-SPRINTEC [Concomitant]
     Active Substance: ETHINYL ESTRADIOL\NORGESTIMATE
  2. NEUTROGENA OIL FREE ACNE WASH PINK GRAPEFRUIT FACIAL CLEANSER [Suspect]
     Active Substance: SALICYLIC ACID
     Indication: THERAPEUTIC SKIN CARE TOPICAL
     Route: 061
     Dates: start: 20200616, end: 20200618

REACTIONS (9)
  - Lip swelling [None]
  - Erythema [None]
  - Nasal oedema [None]
  - Urticaria [None]
  - Eye swelling [None]
  - Cheilitis [None]
  - Pruritus [None]
  - Dry skin [None]
  - Discomfort [None]

NARRATIVE: CASE EVENT DATE: 20200617
